FAERS Safety Report 21004670 (Version 1)
Quarter: 2022Q2

REPORT INFORMATION
  Report Type: Spontaneous
  Country: US (occurrence: None)
  Receive Date: 20220624
  Receipt Date: 20220624
  Transmission Date: 20220721
  Serious: Yes (Hospitalization)
  Sender: FDA-Public Use
  Company Number: None

PATIENT
  Sex: Male

DRUGS (17)
  1. ERLEADA [Suspect]
     Active Substance: APALUTAMIDE
     Indication: Prostate cancer
     Dosage: FREQUENCY : DAILY;?
     Route: 048
  2. XGEVA [Concomitant]
     Active Substance: DENOSUMAB
  3. ACETAMINOPHEN\HYDROCODONE [Concomitant]
     Active Substance: ACETAMINOPHEN\HYDROCODONE
  4. LUPRON [Concomitant]
     Active Substance: LEUPROLIDE ACETATE
  5. EFFEXOR [Concomitant]
     Active Substance: VENLAFAXINE HYDROCHLORIDE
  6. PROCHLORPERAZINE MALEATE [Concomitant]
     Active Substance: PROCHLORPERAZINE MALEATE
  7. COLCHICINE [Concomitant]
     Active Substance: COLCHICINE
  8. DICLOFENAC [Concomitant]
     Active Substance: DICLOFENAC
  9. FAMOTIDINE [Concomitant]
     Active Substance: FAMOTIDINE
  10. BICALUTMIDE [Concomitant]
  11. LISINOPRIL [Concomitant]
     Active Substance: LISINOPRIL
  12. PANTOPRAZOLE SODIUM [Concomitant]
     Active Substance: PANTOPRAZOLE SODIUM
  13. ONDANSETRON HCL [Concomitant]
     Active Substance: ONDANSETRON HYDROCHLORIDE
  14. LINEZOLID [Concomitant]
     Active Substance: LINEZOLID
  15. GABAPENTIN [Concomitant]
     Active Substance: GABAPENTIN
  16. ALLOPURINOL [Concomitant]
     Active Substance: ALLOPURINOL
  17. VENLAFAXINE [Concomitant]
     Active Substance: VENLAFAXINE HYDROCHLORIDE

REACTIONS (3)
  - Gout [None]
  - Peripheral swelling [None]
  - Gait inability [None]
